FAERS Safety Report 6440178-1 (Version None)
Quarter: 2009Q4

REPORT INFORMATION
  Report Type: 
  Country: None (occurrence: None)
  Receive Date: 20091113
  Receipt Date: 20090701
  Transmission Date: 20100525
  Serious: No
  Sender: FDA-Public Use
  Company Number: A0794988A

PATIENT
  Age: 81 Year
  Sex: Male

DRUGS (1)
  1. COREG [Suspect]
     Indication: HYPERTENSION
     Dosage: 6.25MG PER DAY
     Route: 048
     Dates: start: 20090501

REACTIONS (3)
  - BLOOD UREA INCREASED [None]
  - HYPOTENSION [None]
  - PRURITUS [None]
